FAERS Safety Report 9506586 (Version 1)
Quarter: 2013Q3

REPORT INFORMATION
  Report Type: Spontaneous
  Country: US (occurrence: US)
  Receive Date: 20130907
  Receipt Date: 20130907
  Transmission Date: 20140515
  Serious: No
  Sender: FDA-Public Use
  Company Number: US-B.I. PHARMACEUTICALS,INC./RIDGEFIELD-2013-BI-26600BP

PATIENT
  Sex: Female
  Weight: 28 kg

DRUGS (4)
  1. COMBIVENT [Suspect]
     Indication: EMPHYSEMA
     Dosage: DOSE PER APPLICATION: 18 MCG / 103 MCG;
     Route: 055
     Dates: start: 2004
  2. PULMICORT [Concomitant]
     Dosage: 4 PUF
     Route: 055
  3. SUDAFED [Concomitant]
     Route: 048
  4. NASONEX NASAL SPRAY [Concomitant]
     Dosage: FORMULATION:(NASAL SPRAY) DOSE PER APPLICATION: 1 SPRAY; DAILY DOSE: 2 SPRAYS
     Route: 045

REACTIONS (1)
  - Insomnia [Recovered/Resolved]
